FAERS Safety Report 13369771 (Version 1)
Quarter: 2017Q1

REPORT INFORMATION
  Report Type: Spontaneous
  Country: SV (occurrence: SV)
  Receive Date: 20170324
  Receipt Date: 20170324
  Transmission Date: 20170429
  Serious: Yes (Hospitalization)
  Sender: FDA-Public Use
  Company Number: SV-SA-2017SA044978

PATIENT
  Age: 33 Year
  Sex: Male

DRUGS (2)
  1. XUNIRO [Concomitant]
     Route: 048
  2. COAPROVEL [Suspect]
     Active Substance: HYDROCHLOROTHIAZIDE\IRBESARTAN
     Indication: MALIGNANT HYPERTENSION
     Dosage: 300 MG/25 MG
     Route: 048
     Dates: start: 20170222, end: 20170222

REACTIONS (3)
  - Obstructive airways disorder [Recovered/Resolved]
  - Cough [Recovered/Resolved]
  - Rash generalised [Recovered/Resolved]

NARRATIVE: CASE EVENT DATE: 20170222
